FAERS Safety Report 25161544 (Version 1)
Quarter: 2025Q2

REPORT INFORMATION
  Report Type: Spontaneous
  Country: GB (occurrence: GB)
  Receive Date: 20250404
  Receipt Date: 20250404
  Transmission Date: 20250717
  Serious: Yes (Hospitalization, Other)
  Sender: RECORDATI
  Company Number: None

PATIENT
  Age: 22 Year
  Sex: Female
  Weight: 53 kg

DRUGS (9)
  1. CYSTAGON [Suspect]
     Active Substance: CYSTEAMINE BITARTRATE
     Indication: Cystinosis
     Dosage: 650 MILLIGRAM, QID
     Dates: start: 20150101
  2. CYSTAGON [Suspect]
     Active Substance: CYSTEAMINE BITARTRATE
     Dosage: 200 MG, QID
  3. CYSTEAMINE [Suspect]
     Active Substance: CYSTEAMINE
     Indication: Cystinosis
  4. POTASSIUM BICARBONATE [Concomitant]
     Active Substance: POTASSIUM BICARBONATE
     Indication: Fanconi syndrome
  5. CITRIC ACID [Concomitant]
     Active Substance: CITRIC ACID MONOHYDRATE
     Indication: Fanconi syndrome
  6. POTASSIUM CITRATE [Concomitant]
     Active Substance: POTASSIUM CITRATE
     Indication: Fanconi syndrome
  7. LANSOPRAZOLE [Concomitant]
     Active Substance: LANSOPRAZOLE
     Indication: Gastrooesophageal reflux disease
  8. SERTRALINE [Concomitant]
     Active Substance: SERTRALINE HYDROCHLORIDE
     Indication: Depression
  9. SERTRALINE [Concomitant]
     Active Substance: SERTRALINE HYDROCHLORIDE
     Indication: Anxiety

REACTIONS (9)
  - Gastrointestinal haemorrhage [Recovered/Resolved]
  - Toxicity to various agents [Unknown]
  - Encephalopathy [Recovered/Resolved]
  - Quadriparesis [Recovered/Resolved]
  - Copper deficiency [Recovered/Resolved]
  - Trismus [Recovered/Resolved]
  - Hyperreflexia [Recovered/Resolved]
  - Blood lactic acid increased [Recovered/Resolved]
  - Ceruloplasmin decreased [Recovered/Resolved]

NARRATIVE: CASE EVENT DATE: 20221201
